FAERS Safety Report 17318862 (Version 2)
Quarter: 2023Q1

REPORT INFORMATION
  Report Type: Report from Study
  Country: EG (occurrence: EG)
  Receive Date: 20200124
  Receipt Date: 20230218
  Transmission Date: 20230418
  Serious: Yes (Other)
  Sender: FDA-Public Use
  Company Number: EG-BAYER-2020-010681

PATIENT
  Sex: Female

DRUGS (3)
  1. EYLEA [Suspect]
     Active Substance: AFLIBERCEPT
     Indication: Eye disorder prophylaxis
     Dosage: BOTH EYES, Q4WK, SOLUTION FOR INJECTION, 40 MG/ML
     Route: 031
  2. EYLEA [Suspect]
     Active Substance: AFLIBERCEPT
     Indication: Age-related macular degeneration
     Dosage: UNK, RIGHT EYE, SOLUTION FOR INJECTION, 40 MG/ML
     Dates: start: 20221211, end: 20221211
  3. EYLEA [Suspect]
     Active Substance: AFLIBERCEPT
     Indication: Age-related macular degeneration
     Dosage: UNK, LEFT EYE, SOLUTION FOR INJECTION, 40 MG/ML
     Dates: start: 20221214, end: 20221214

REACTIONS (5)
  - Retinal haemorrhage [Unknown]
  - Retinal oedema [Not Recovered/Not Resolved]
  - Off label use [Not Recovered/Not Resolved]
  - Asthenopia [Unknown]
  - Fatigue [Unknown]

NARRATIVE: CASE EVENT DATE: 20200116
